FAERS Safety Report 6228526-9 (Version None)
Quarter: 2009Q2

REPORT INFORMATION
  Report Type: 
  Country: None (occurrence: None)
  Receive Date: 20090612
  Receipt Date: 20090601
  Transmission Date: 20091009
  Serious: Yes (Other)
  Sender: FDA-Public Use
  Company Number: PHHY2009BR22253

PATIENT
  Age: 29 Year
  Sex: Female
  Weight: 62 kg

DRUGS (5)
  1. RITALIN [Suspect]
     Indication: DEPRESSED MOOD
     Dosage: 1 DF, QD
     Route: 048
  2. RITALIN [Suspect]
     Indication: FATIGUE
  3. RITALIN [Suspect]
     Indication: PAIN
  4. RITALIN [Suspect]
     Indication: MALAISE
  5. FLUOXETINA [Concomitant]
     Dosage: 20 MG, QD

REACTIONS (9)
  - BLOOD URINE PRESENT [None]
  - DERMATITIS BULLOUS [None]
  - DYSURIA [None]
  - HYPERSENSITIVITY [None]
  - MUSCLE SPASMS [None]
  - OLIGURIA [None]
  - PRURITUS [None]
  - SKIN HYPERTROPHY [None]
  - URINARY TRACT INFECTION [None]
